FAERS Safety Report 16098791 (Version 1)
Quarter: 2019Q1

REPORT INFORMATION
  Report Type: Spontaneous
  Country: US (occurrence: US)
  Receive Date: 20190321
  Receipt Date: 20190321
  Transmission Date: 20190418
  Serious: No
  Sender: FDA-Public Use
  Company Number: US-BAUSCH-BL-2019-006621

PATIENT
  Age: 73 Year
  Sex: Female

DRUGS (5)
  1. UCERIS [Suspect]
     Active Substance: BUDESONIDE
     Indication: PRODUCT USE IN UNAPPROVED INDICATION
     Dosage: TAKING EVERY OTHER DAY
     Route: 065
  2. BYSTOLIC [Concomitant]
     Active Substance: NEBIVOLOL HYDROCHLORIDE
     Indication: PRODUCT USED FOR UNKNOWN INDICATION
  3. UCERIS [Suspect]
     Active Substance: BUDESONIDE
     Route: 065
     Dates: start: 201902
  4. UCERIS [Suspect]
     Active Substance: BUDESONIDE
     Indication: COLITIS MICROSCOPIC
     Dosage: STARTED SEVERAL YEARS AGO
     Route: 065
  5. IMITREX [Concomitant]
     Active Substance: SUMATRIPTAN SUCCINATE
     Indication: PRODUCT USED FOR UNKNOWN INDICATION

REACTIONS (5)
  - Skin atrophy [Unknown]
  - Product use in unapproved indication [Unknown]
  - Headache [Unknown]
  - Contusion [Unknown]
  - Therapy cessation [Unknown]
